FAERS Safety Report 17338428 (Version 1)
Quarter: 2020Q1

REPORT INFORMATION
  Report Type: Spontaneous
  Country: US (occurrence: US)
  Receive Date: 20200128
  Receipt Date: 20200128
  Transmission Date: 20200409
  Serious: Yes (Hospitalization, Other)
  Sender: FDA-Public Use
  Company Number: None

PATIENT
  Age: 59 Year
  Sex: Female
  Weight: 67.5 kg

DRUGS (1)
  1. RELPAX [Suspect]
     Active Substance: ELETRIPTAN HYDROBROMIDE
     Indication: MIGRAINE
     Route: 048

REACTIONS (7)
  - Fatigue [None]
  - Abdominal discomfort [None]
  - Diarrhoea [None]
  - Asthenia [None]
  - Headache [None]
  - Pain [None]
  - Vomiting [None]

NARRATIVE: CASE EVENT DATE: 20190901
